FAERS Safety Report 4348196-4 (Version None)
Quarter: 2004Q2

REPORT INFORMATION
  Report Type: 
  Country: None (occurrence: None)
  Receive Date: 20040422
  Receipt Date: 20040401
  Transmission Date: 20050107
  Serious: Yes (Other)
  Sender: FDA-Public Use
  Company Number: USA040463836

PATIENT
  Age: 46 Year
  Sex: Male

DRUGS (3)
  1. FORTEO [Suspect]
     Indication: OSTEOPOROSIS
     Dosage: 20 UG DAY
     Dates: start: 20040302, end: 20040329
  2. OXYCONTIN (LXYCODONE HYDROCHLORIDE) [Concomitant]
  3. MORPHINE [Concomitant]

REACTIONS (15)
  - ABNORMAL BEHAVIOUR [None]
  - COMA [None]
  - DELIRIUM [None]
  - DIARRHOEA [None]
  - DIZZINESS [None]
  - FLUSHING [None]
  - HEADACHE [None]
  - INFLUENZA LIKE ILLNESS [None]
  - LETHARGY [None]
  - LOSS OF CONSCIOUSNESS [None]
  - MUSCLE SPASMS [None]
  - MUSCULAR WEAKNESS [None]
  - MYOCLONIC EPILEPSY [None]
  - PAIN [None]
  - TREMOR [None]
